FAERS Safety Report 7012822-1 (Version None)
Quarter: 2010Q3

REPORT INFORMATION
  Report Type: 
  Country: None (occurrence: None)
  Receive Date: 20100924
  Receipt Date: 20100916
  Transmission Date: 20110219
  Serious: Yes (Disabling)
  Sender: FDA-Public Use
  Company Number: B0674873A

PATIENT
  Sex: Female

DRUGS (10)
  1. AUGMENTIN '125' [Suspect]
     Indication: CATHETER SITE INFECTION
     Route: 048
     Dates: start: 20100522, end: 20100605
  2. CARBOPLATIN [Suspect]
     Indication: CHEMOTHERAPY
     Route: 042
     Dates: start: 20100402, end: 20100514
  3. PACLITAXEL [Suspect]
     Indication: CHEMOTHERAPY
     Route: 042
     Dates: start: 20100402, end: 20100514
  4. OFLOCET [Suspect]
     Indication: CATHETER SITE INFECTION
     Route: 048
     Dates: start: 20100522, end: 20100530
  5. FLAGYL [Suspect]
     Indication: PRODUCT USED FOR UNKNOWN INDICATION
     Dosage: 500MG THREE TIMES PER DAY
     Route: 048
     Dates: start: 20100531, end: 20100605
  6. TARGOCID [Suspect]
     Indication: PRODUCT USED FOR UNKNOWN INDICATION
     Route: 065
     Dates: start: 20100606, end: 20100617
  7. NEXIUM [Suspect]
     Route: 048
     Dates: start: 20100531, end: 20100614
  8. GENTAMICIN [Suspect]
     Indication: PRODUCT USED FOR UNKNOWN INDICATION
     Route: 065
     Dates: start: 20100606
  9. HYDROCORTISONE [Suspect]
     Route: 048
     Dates: start: 20100522, end: 20100530
  10. LASIX [Concomitant]
     Route: 065

REACTIONS (4)
  - FALL [None]
  - MUSCULAR WEAKNESS [None]
  - NEUROPATHY PERIPHERAL [None]
  - SENSORIMOTOR DISORDER [None]
